FAERS Safety Report 12314634 (Version 4)
Quarter: 2016Q2

REPORT INFORMATION
  Report Type: Spontaneous
  Country: US (occurrence: US)
  Receive Date: 20160428
  Receipt Date: 20160610
  Transmission Date: 20160815
  Serious: Yes (Other)
  Sender: FDA-Public Use
  Company Number: US-MDT-ADR-2016-00766

PATIENT
  Age: 58 Year
  Sex: Female

DRUGS (25)
  1. XANAX [Suspect]
     Active Substance: ALPRAZOLAM
     Dosage: 1 MG AS NEEDED
     Dates: start: 20110426
  2. CRESTOR [Suspect]
     Active Substance: ROSUVASTATIN CALCIUM
     Dosage: 20MG, ONE EVERY DAY
     Dates: start: 20110426
  3. ONDANSETRON ODT [Suspect]
     Active Substance: ONDANSETRON
     Dosage: 8 MG TAB, ONE TABLET EVERY  12-HOURS
     Route: 048
     Dates: start: 20070625
  4. LIDODERM [Suspect]
     Active Substance: LIDOCAINE
     Dosage: 1 PATCH TO AFFECTED AREA FOR UP TO 12 HRS IN 24 HRS AS NEEDED
     Route: 061
     Dates: start: 20130108
  5. METOLAZONE. [Suspect]
     Active Substance: METOLAZONE
     Dosage: 2.5MG ONE EVERY DAY
     Dates: start: 20110426
  6. CYMBALTA [Suspect]
     Active Substance: DULOXETINE HYDROCHLORIDE
     Dosage: 30MG, ONE EVERY DAY
     Dates: start: 20110426
  7. BACLOFEN. [Suspect]
     Active Substance: BACLOFEN
     Dosage: 335.18 MCG/DAY
     Route: 037
     Dates: start: 20160425
  8. COUMADIN [Suspect]
     Active Substance: WARFARIN SODIUM
     Dosage: 18MG, ONE EVERY DAY
     Dates: start: 20110426
  9. BUPIVACAINE. [Suspect]
     Active Substance: BUPIVACAINE
     Dosage: 21.6 MG/DAY
     Route: 037
  10. LASIX [Suspect]
     Active Substance: FUROSEMIDE
     Dosage: 40MG, ONE EVERY DAY
     Dates: start: 20110426
  11. TEGRETOL [Suspect]
     Active Substance: CARBAMAZEPINE
     Dosage: 200MG, ONE TWICE A DAY
     Dates: start: 20110426
  12. MARCAINE [Suspect]
     Active Substance: BUPIVACAINE HYDROCHLORIDE
     Dosage: 22 MG/DAY
     Route: 037
     Dates: start: 20130917
  13. NORCO [Suspect]
     Active Substance: ACETAMINOPHEN\HYDROCODONE BITARTRATE
     Dosage: 10-325 MG 1 ORAL EVERY DAY AS NEEDED
     Route: 048
     Dates: start: 20120518
  14. LIPITOR [Suspect]
     Active Substance: ATORVASTATIN CALCIUM
     Dosage: 80 MG TABS  EVERY DA
     Dates: start: 20110816
  15. DETROL [Suspect]
     Active Substance: TOLTERODINE TARTRATE
     Dosage: 2MG ONE TWICE A DAY
     Dates: start: 20110426
  16. DILAUDID [Suspect]
     Active Substance: HYDROMORPHONE HYDROCHLORIDE
     Dosage: 18.021 MG/DAY
     Route: 037
     Dates: start: 20160425
  17. SPIRONOLACTONE. [Suspect]
     Active Substance: SPIRONOLACTONE
     Dosage: 50MG, ONE TWICE A DAY
     Dates: start: 20110426
  18. DILAUDID [Suspect]
     Active Substance: HYDROMORPHONE HYDROCHLORIDE
     Dosage: 18.2 MG/DAY
     Route: 037
     Dates: start: 20141021
  19. COMPOUNDED BACLOFEN [Suspect]
     Active Substance: BACLOFEN
     Dosage: 335 MCG/DAY
     Route: 037
  20. DILAUDID [Suspect]
     Active Substance: HYDROMORPHONE HYDROCHLORIDE
     Dosage: 18 MG/DAY
     Route: 037
  21. DILAUDID [Suspect]
     Active Substance: HYDROMORPHONE HYDROCHLORIDE
     Dosage: ONE EVERY SIX HOURS
     Dates: start: 20120131
  22. POTASSIUM CL [Suspect]
     Active Substance: POTASSIUM CHLORIDE
     Dosage: 20MEQ, 2 TWICE A DAY
     Dates: start: 20110426
  23. BUPIVACAINE. [Suspect]
     Active Substance: BUPIVACAINE
     Dosage: 21.625 MG/DAY
     Route: 037
     Dates: start: 20160425
  24. ZOFRAN ODT [Suspect]
     Active Substance: ONDANSETRON HYDROCHLORIDE
     Dosage: 8MG, AS NEEDED
     Dates: start: 20110426
  25. LIORESAL [Suspect]
     Active Substance: BACLOFEN
     Dosage: 335 MCG/ DAY
     Route: 037
     Dates: start: 20130917

REACTIONS (1)
  - Pain [Unknown]
